FAERS Safety Report 4461643-2 (Version None)
Quarter: 2004Q3

REPORT INFORMATION
  Report Type: 
  Country: None (occurrence: None)
  Receive Date: 20040923
  Receipt Date: 20040910
  Transmission Date: 20050211
  Serious: Yes (Hospitalization, Other)
  Sender: FDA-Public Use
  Company Number: HQWYE859801JUL04

PATIENT
  Age: 64 Year
  Sex: Male

DRUGS (3)
  1. TACROLIMUS, CONTROL  SIROLIMUS (TACROLIMUS   FOR SIROLIMUS) [Suspect]
     Indication: PROPHYLAXIS AGAINST TRANSPLANT REJECTION
     Dosage: 2 MG 1X PER 12 HR; ORAL
     Route: 048
     Dates: start: 20010101
  2. INSULIN [Concomitant]
  3. TACROLIMUS [Concomitant]

REACTIONS (5)
  - ATRIAL FLUTTER [None]
  - CARDIAC FAILURE [None]
  - CEREBROVASCULAR ACCIDENT [None]
  - DYSARTHRIA [None]
  - RESPIRATORY FAILURE [None]
